FAERS Safety Report 10099657 (Version 2)
Quarter: 2014Q2

REPORT INFORMATION
  Report Type: Spontaneous
  Country: US (occurrence: US)
  Receive Date: 20140423
  Receipt Date: 20140423
  Transmission Date: 20141212
  Serious: No
  Sender: FDA-Public Use
  Company Number: US-GILEAD-2013-0069681

PATIENT
  Age: 48 Year
  Sex: Female

DRUGS (11)
  1. LETAIRIS [Suspect]
     Indication: PULMONARY HYPERTENSION
     Dosage: 5 MG, QD
     Dates: start: 20121003, end: 20130305
  2. LETAIRIS [Suspect]
     Indication: SCLERODERMA
     Dosage: 5 MG, QOD
  3. TYVASO [Concomitant]
  4. ADCIRCA [Concomitant]
  5. ADVAIR [Concomitant]
  6. BONIVA [Concomitant]
  7. LASIX                              /00032601/ [Concomitant]
  8. PREDNISONE [Concomitant]
  9. KCL [Concomitant]
  10. PROVENTIL                          /00139501/ [Concomitant]
  11. VITAMIN D NOS [Concomitant]

REACTIONS (2)
  - Liver disorder [Unknown]
  - Blood alkaline phosphatase increased [Unknown]
